FAERS Safety Report 4993630-X (Version None)
Quarter: 2006Q2

REPORT INFORMATION
  Report Type: 
  Country: None (occurrence: None)
  Receive Date: 20060505
  Receipt Date: 20060424
  Transmission Date: 20061013
  Serious: Yes (Other)
  Sender: FDA-Public Use
  Company Number: 2006AP01970

PATIENT
  Age: 20126 Day
  Sex: Male
  Weight: 67 kg

DRUGS (5)
  1. CRESTOR [Suspect]
     Indication: HYPERLIPIDAEMIA
     Route: 048
     Dates: start: 20060224, end: 20060331
  2. ISONIAZID [Interacting]
     Indication: TUBERCULOSIS
     Dates: start: 20060224, end: 20060411
  3. RIFAMPICIN [Interacting]
     Indication: TUBERCULOSIS
     Dates: start: 20060224, end: 20060411
  4. PYRAZINAMIDE [Interacting]
     Indication: TUBERCULOSIS
     Dates: start: 20060224, end: 20060411
  5. ETHAMBUTOL [Interacting]
     Indication: TUBERCULOSIS
     Dates: start: 20060224, end: 20060411

REACTIONS (2)
  - ALANINE AMINOTRANSFERASE INCREASED [None]
  - DRUG INTERACTION [None]
